FAERS Safety Report 6317839-8 (Version None)
Quarter: 2009Q3

REPORT INFORMATION
  Report Type: 
  Country: None (occurrence: None)
  Receive Date: 20090821
  Receipt Date: 20090602
  Transmission Date: 20100115
  Serious: No
  Sender: FDA-Public Use
  Company Number: US-BAYER-200922630NA

PATIENT
  Age: 33 Year
  Sex: Female
  Weight: 86 kg

DRUGS (5)
  1. YAZ [Suspect]
     Indication: CONTRACEPTION
     Route: 048
     Dates: start: 20090501
  2. OXYCODONE [Concomitant]
     Indication: INTERVERTEBRAL DISC PROTRUSION
  3. SALINE NASAL SPRAY [Concomitant]
     Indication: RHINITIS ALLERGIC
  4. BENADRYL [Concomitant]
     Indication: RHINITIS ALLERGIC
  5. SUDAFED 12 HOUR [Concomitant]
     Indication: RHINITIS ALLERGIC

REACTIONS (1)
  - VAGINAL HAEMORRHAGE [None]
